FAERS Safety Report 4330811-2 (Version None)
Quarter: 2004Q1

REPORT INFORMATION
  Report Type: 
  Country: None (occurrence: None)
  Receive Date: 20040331
  Receipt Date: 20040315
  Transmission Date: 20041129
  Serious: Yes (Hospitalization, Disabling, Other)
  Sender: FDA-Public Use
  Company Number: USA040361904

PATIENT
  Age: 67 Year
  Sex: Male

DRUGS (2)
  1. HUMALOG [Suspect]
     Indication: DIABETES MELLITUS
     Dates: start: 20010101
  2. LANTUS [Concomitant]

REACTIONS (7)
  - BLOOD GLUCOSE DECREASED [None]
  - BLOOD GLUCOSE INCREASED [None]
  - MEDICATION ERROR [None]
  - OSTEOARTHRITIS [None]
  - PHARMACEUTICAL PRODUCT COMPLAINT [None]
  - SPINAL COMPRESSION FRACTURE [None]
  - SPINAL OSTEOARTHRITIS [None]
